FAERS Safety Report 8189351-5 (Version None)
Quarter: 2012Q1

REPORT INFORMATION
  Report Type: 
  Country: None (occurrence: None)
  Receive Date: 20120307
  Receipt Date: 20120301
  Transmission Date: 20120608
  Serious: Yes (Death, Hospitalization, Disabling)
  Sender: FDA-Public Use
  Company Number: CN-CELGENEUS-035-C5013-11012299

PATIENT
  Sex: Female
  Weight: 55 kg

DRUGS (7)
  1. MELPHALAN HYDROCHLORIDE [Suspect]
     Indication: MULTIPLE MYELOMA
     Dosage: 14 MILLIGRAM
     Route: 065
     Dates: start: 20110113, end: 20110116
  2. DILTIAZEM HCL [Concomitant]
     Route: 048
  3. INSULIN [Concomitant]
     Indication: DIABETES MELLITUS
     Route: 058
     Dates: start: 19900101
  4. ASPIRIN [Concomitant]
     Dosage: 75 MILLIGRAM
     Route: 048
     Dates: start: 20101201
  5. THALIDOMIDE [Suspect]
     Indication: MULTIPLE MYELOMA
     Dosage: 200 MILLIGRAM
     Route: 048
     Dates: start: 20110113, end: 20110122
  6. PREDNISONE TAB [Suspect]
     Indication: MULTIPLE MYELOMA
     Dosage: 110 MILLIGRAM
     Route: 065
     Dates: start: 20110113, end: 20110116
  7. FLUVASTATIN [Concomitant]
     Route: 048

REACTIONS (1)
  - CEREBRAL INFARCTION [None]
